FAERS Safety Report 8473903-9 (Version None)
Quarter: 2012Q2

REPORT INFORMATION
  Report Type: 
  Country: None (occurrence: None)
  Receive Date: 20120628
  Receipt Date: 20120514
  Transmission Date: 20120825
  Serious: Yes (Other)
  Sender: FDA-Public Use
  Company Number: US-MYLANLABS-2012S1001709

PATIENT
  Age: 51 Year
  Sex: Male

DRUGS (8)
  1. CLOZAPINE [Suspect]
     Indication: SCHIZOPHRENIA, PARANOID TYPE
     Route: 048
     Dates: start: 20111216, end: 20120417
  2. CLOZAPINE [Suspect]
     Route: 048
  3. CLOZAPINE [Suspect]
     Route: 048
  4. GABAPENTIN [Concomitant]
     Route: 048
  5. OLANZAPINE [Concomitant]
     Dates: start: 20120430
  6. VALPROIC ACID [Concomitant]
     Route: 048
     Dates: start: 20111216
  7. OLANZAPINE [Concomitant]
     Dates: start: 20120501
  8. CLOZAPINE [Suspect]
     Indication: SCHIZOAFFECTIVE DISORDER
     Route: 048
     Dates: start: 20111216, end: 20120417

REACTIONS (1)
  - GRANULOCYTOPENIA [None]
